FAERS Safety Report 9365160 (Version 1)
Quarter: 2013Q2

REPORT INFORMATION
  Report Type: Spontaneous
  Country: GB (occurrence: GB)
  Receive Date: 20130624
  Receipt Date: 20130624
  Transmission Date: 20140414
  Serious: Yes (Other)
  Sender: FDA-Public Use
  Company Number: PHHY2013GB062745

PATIENT
  Age: 55 Year
  Sex: Female
  Weight: 43.8 kg

DRUGS (10)
  1. PROPRANOLOL [Suspect]
     Indication: ASTHMA
     Dosage: 60 MG, QD
     Route: 048
     Dates: start: 20130507, end: 20130511
  2. PREDNISOL [Concomitant]
  3. SALBUTAMOL [Concomitant]
  4. ADCAL-D3 [Concomitant]
  5. SYMBICORT [Concomitant]
  6. MONTELUKAST [Concomitant]
  7. AMITRIPTYLINE [Concomitant]
  8. FLIXONASE [Concomitant]
  9. ALENDRONIC ACID [Concomitant]
  10. HYDROCORTISONE [Concomitant]

REACTIONS (7)
  - Alopecia [Not Recovered/Not Resolved]
  - Chest pain [Not Recovered/Not Resolved]
  - Medication error [Unknown]
  - Vomiting [Not Recovered/Not Resolved]
  - Dyspnoea [Not Recovered/Not Resolved]
  - Nausea [Not Recovered/Not Resolved]
  - Fatigue [Not Recovered/Not Resolved]
